FAERS Safety Report 4529142-7 (Version None)
Quarter: 2004Q4

REPORT INFORMATION
  Report Type: 
  Country: None (occurrence: None)
  Receive Date: 20041214
  Receipt Date: 20041201
  Transmission Date: 20050328
  Serious: Yes (Death, Life-Threatening, Hospitalization, Other)
  Sender: FDA-Public Use
  Company Number: 2004083547

PATIENT
  Age: 58 Year
  Sex: Male

DRUGS (2)
  1. PHENYTOIN SODIUM [Suspect]
     Indication: CONVULSION
     Dates: start: 20040101, end: 20040201
  2. CARBAMAZEPINE [Suspect]
     Indication: HYPERSENSITIVITY
     Dates: start: 20040201, end: 20040727

REACTIONS (6)
  - APLASTIC ANAEMIA [None]
  - HYPERSENSITIVITY [None]
  - KLEBSIELLA SEPSIS [None]
  - PANCYTOPENIA [None]
  - SKIN INFECTION [None]
  - STAPHYLOCOCCAL SEPSIS [None]
